FAERS Safety Report 15232143 (Version 2)
Quarter: 2018Q3

REPORT INFORMATION
  Report Type: Report from Study
  Country: US (occurrence: US)
  Receive Date: 20180802
  Receipt Date: 20180808
  Transmission Date: 20181010
  Serious: Yes (Other)
  Sender: FDA-Public Use
  Company Number: US-SHIRE-US201829478

PATIENT
  Sex: Male

DRUGS (1)
  1. VYVANSE [Suspect]
     Active Substance: LISDEXAMFETAMINE DIMESYLATE
     Indication: PRODUCT USED FOR UNKNOWN INDICATION
     Dosage: UNK (HE HAS BEEN ON VYVANSE SINCE 11 YEARS OLD)
     Route: 065

REACTIONS (3)
  - Amnesia [Unknown]
  - Osteoarthritis [Unknown]
  - Parkinson^s disease [Unknown]
